FAERS Safety Report 5603097-6 (Version None)
Quarter: 2008Q1

REPORT INFORMATION
  Report Type: 
  Country: None (occurrence: None)
  Receive Date: 20080125
  Receipt Date: 20080115
  Transmission Date: 20080703
  Serious: Yes (Hospitalization, Other)
  Sender: FDA-Public Use
  Company Number: US-PFIZER INC-2007106118

PATIENT
  Sex: Female
  Weight: 63.5 kg

DRUGS (3)
  1. CHANTIX [Suspect]
     Indication: SMOKING CESSATION THERAPY
     Dates: start: 20071101, end: 20071201
  2. WELLBUTRIN [Concomitant]
  3. ADVIL LIQUI-GELS [Concomitant]

REACTIONS (4)
  - INFLUENZA LIKE ILLNESS [None]
  - NEPHROLITHIASIS [None]
  - URINARY TRACT INFECTION [None]
  - WEIGHT DECREASED [None]
